FAERS Safety Report 4416529-6 (Version None)
Quarter: 2004Q2

REPORT INFORMATION
  Report Type: 
  Country: None (occurrence: None)
  Receive Date: 20040630
  Receipt Date: 20040520
  Transmission Date: 20050107
  Serious: Yes (Death)
  Sender: FDA-Public Use
  Company Number: 04P-163-0261435-00

PATIENT
  Age: 87 Year
  Sex: Female

DRUGS (10)
  1. HUMIRA [Suspect]
     Indication: RHEUMATOID ARTHRITIS
     Dosage: 40 MG, 1 IN 2 WK, SUBCUTANEOUS
     Route: 058
     Dates: start: 20040301, end: 20040401
  2. SUCRALFATE [Concomitant]
  3. CELECOXIB [Concomitant]
  4. METOPROLOL [Concomitant]
  5. PANTOPRAZOLE [Concomitant]
  6. CLOPIDOGREL BISULFATE [Concomitant]
  7. ALENDRONATE SODIUM [Concomitant]
  8. CALCIUM [Concomitant]
  9. FOLIC ACID [Concomitant]
  10. MEGESTROL [Concomitant]

REACTIONS (1)
  - DEATH [None]
